FAERS Safety Report 5778571-2 (Version None)
Quarter: 2008Q2

REPORT INFORMATION
  Report Type: 
  Country: None (occurrence: None)
  Receive Date: 20080618
  Receipt Date: 20080618
  Transmission Date: 20081010
  Serious: Yes (Other)
  Sender: FDA-Public Use
  Company Number: None

PATIENT
  Sex: Female
  Weight: 58.9676 kg

DRUGS (2)
  1. LYRICA [Suspect]
     Indication: NECK PAIN
     Dosage: 75MG TID PO
     Route: 048
     Dates: start: 20071031, end: 20080430
  2. LYRICA [Suspect]
     Indication: PAIN IN EXTREMITY
     Dosage: 75MG TID PO
     Route: 048
     Dates: start: 20071031, end: 20080430

REACTIONS (4)
  - ARTHRALGIA [None]
  - BURNING SENSATION [None]
  - MIDDLE INSOMNIA [None]
  - MUSCLE TIGHTNESS [None]
